FAERS Safety Report 20080991 (Version 1)
Quarter: 2021Q4

REPORT INFORMATION
  Report Type: Spontaneous
  Country: DE (occurrence: CH)
  Receive Date: 20211117
  Receipt Date: 20211117
  Transmission Date: 20220303
  Serious: Yes (Other)
  Sender: FDA-Public Use
  Company Number: DE-TAKEDA-2021TUS069519

PATIENT
  Sex: Female

DRUGS (1)
  1. BRIGATINIB [Suspect]
     Active Substance: BRIGATINIB
     Indication: Anaplastic large-cell lymphoma
     Dosage: UNK
     Route: 065
     Dates: start: 2019

REACTIONS (3)
  - Breast cancer [Unknown]
  - Anaplastic large-cell lymphoma [Unknown]
  - Drug interaction [Unknown]
